FAERS Safety Report 7989255-4 (Version None)
Quarter: 2011Q4

REPORT INFORMATION
  Report Type: 
  Country: None (occurrence: None)
  Receive Date: 20111216
  Receipt Date: 20111216
  Transmission Date: 20120403
  Serious: Yes (Other)
  Sender: FDA-Public Use
  Company Number: None

PATIENT
  Age: 35 Year
  Sex: Male

DRUGS (1)
  1. AVONEX [Suspect]
     Dosage: 30MCG QW INTRAMUSCULARLY
     Route: 030
     Dates: start: 20091207, end: 20111118

REACTIONS (2)
  - MUSCULOSKELETAL STIFFNESS [None]
  - MONOPLEGIA [None]
